FAERS Safety Report 8426017-8 (Version None)
Quarter: 2012Q2

REPORT INFORMATION
  Report Type: 
  Country: None (occurrence: None)
  Receive Date: 20120611
  Receipt Date: 20120531
  Transmission Date: 20120825
  Serious: Yes (Disabling, Other)
  Sender: FDA-Public Use
  Company Number: US-SANOFI-AVENTIS-2011SA020768

PATIENT
  Age: 70 Year
  Sex: Male
  Weight: 106.5 kg

DRUGS (37)
  1. LIPITOR [Suspect]
     Route: 065
  2. LOTRIMIN [Suspect]
     Route: 065
  3. LANTUS [Concomitant]
     Dosage: DOSE:12 UNIT(S)
  4. PRAVASTATIN [Concomitant]
  5. TIMOLOL MALEATE [Concomitant]
  6. PILOCARPINE [Concomitant]
  7. TOPROL-XL [Suspect]
     Indication: BLOOD PRESSURE
     Route: 065
     Dates: start: 20090101
  8. LUMIGAN [Concomitant]
  9. FOLIC ACID [Concomitant]
  10. XALATAN [Suspect]
     Route: 065
  11. IBUPROFEN (ADVIL) [Suspect]
     Route: 065
     Dates: start: 20110301, end: 20110301
  12. METFORMIN HCL [Suspect]
     Indication: DIABETES MELLITUS
     Route: 065
     Dates: start: 20101018
  13. ZOCOR [Suspect]
     Route: 065
  14. DIAZEPAM [Concomitant]
  15. CLOZAPINE [Concomitant]
  16. PROZAC [Suspect]
     Route: 065
  17. OXYCODONE HCL [Concomitant]
     Indication: BACK PAIN
  18. FUROSEMIDE [Concomitant]
  19. ARTIFICIAL TEARS [Concomitant]
  20. PLAVIX [Suspect]
     Route: 065
  21. ZETIA [Suspect]
     Route: 065
  22. CYCLOSPORINE [Suspect]
     Route: 065
  23. BILBERRY [Concomitant]
  24. FISH OIL [Concomitant]
  25. IBUPROFEN (ADVIL) [Suspect]
     Indication: BACK PAIN
     Route: 065
     Dates: end: 20100101
  26. ALPRAZOLAM [Suspect]
     Route: 065
  27. PROSCAR [Suspect]
     Route: 065
  28. REGLAN [Suspect]
     Route: 065
  29. COREG [Suspect]
     Route: 065
  30. ALLOPURINOL [Concomitant]
  31. POTASSIUM CHLORIDE [Concomitant]
  32. TRAMADOL HCL [Suspect]
     Route: 065
  33. LUVOX [Suspect]
     Route: 065
  34. VICODIN [Concomitant]
  35. ACETYLSALICYLIC ACID SRT [Concomitant]
  36. LOSARTAN [Concomitant]
  37. DIGOXIN [Concomitant]

REACTIONS (14)
  - MYALGIA [None]
  - VOMITING [None]
  - CONSTIPATION [None]
  - DYSPNOEA [None]
  - DRUG HYPERSENSITIVITY [None]
  - ASTHENIA [None]
  - ABASIA [None]
  - BLOOD GLUCOSE INCREASED [None]
  - BACK PAIN [None]
  - SLEEP DISORDER [None]
  - ARTHROPATHY [None]
  - FATIGUE [None]
  - NAUSEA [None]
  - CHEST DISCOMFORT [None]
